FAERS Safety Report 10129243 (Version 1)
Quarter: 2014Q2

REPORT INFORMATION
  Report Type: Spontaneous
  Country: US (occurrence: US)
  Receive Date: 20140428
  Receipt Date: 20140428
  Transmission Date: 20141212
  Serious: Yes (Hospitalization)
  Sender: FDA-Public Use
  Company Number: US-SUN PHARMACEUTICAL INDUSTRIES LTD-2014SUN00906

PATIENT
  Sex: 0

DRUGS (1)
  1. DIVALPROEX SODIUM DR TABS 125MG [Suspect]
     Indication: PRODUCT USED FOR UNKNOWN INDICATION
     Dosage: UNK
     Route: 065
     Dates: start: 20130423

REACTIONS (3)
  - Fall [Unknown]
  - Lymphoedema [Unknown]
  - Back pain [Unknown]
